FAERS Safety Report 19691887 (Version 1)
Quarter: 2021Q3

REPORT INFORMATION
  Report Type: Spontaneous
  Country: FR (occurrence: FR)
  Receive Date: 20210812
  Receipt Date: 20210812
  Transmission Date: 20211014
  Serious: Yes (Hospitalization, Other)
  Sender: FDA-Public Use
  Company Number: FR-PFIZER INC-202100987500

PATIENT
  Age: 28 Year
  Sex: Male

DRUGS (2)
  1. CANNABIS SATIVA SUBSP. INDICA [Suspect]
     Active Substance: CANNABIS SATIVA FLOWERING TOP
     Dosage: UNK
     Route: 055
  2. ALPRAZOLAM. [Suspect]
     Active Substance: ALPRAZOLAM
     Dosage: UNK
     Route: 048

REACTIONS (3)
  - Drug dependence [Recovering/Resolving]
  - Cognitive disorder [Recovering/Resolving]
  - Abulia [Recovering/Resolving]
